FAERS Safety Report 20932267 (Version 1)
Quarter: 2022Q2

REPORT INFORMATION
  Report Type: Spontaneous
  Country: US (occurrence: None)
  Receive Date: 20220608
  Receipt Date: 20220608
  Transmission Date: 20220721
  Serious: No
  Sender: FDA-Public Use
  Company Number: US-ROCHE-2896085

PATIENT
  Sex: Female

DRUGS (2)
  1. ACTEMRA [Suspect]
     Active Substance: TOCILIZUMAB
     Indication: Scleroderma
     Route: 042
     Dates: start: 201910
  2. ACTEMRA [Suspect]
     Active Substance: TOCILIZUMAB
     Indication: Pulmonary hypertension

REACTIONS (4)
  - Fall [Unknown]
  - Limb injury [Not Recovered/Not Resolved]
  - Scratch [Not Recovered/Not Resolved]
  - Off label use [Unknown]
